FAERS Safety Report 25784567 (Version 1)
Quarter: 2025Q3

REPORT INFORMATION
  Report Type: Spontaneous
  Country: CA (occurrence: CA)
  Receive Date: 20250910
  Receipt Date: 20250910
  Transmission Date: 20251020
  Serious: Yes (Other)
  Sender: ACCORD
  Company Number: None

PATIENT
  Age: 17 Month
  Sex: Female

DRUGS (5)
  1. METHOTREXATE [Suspect]
     Active Substance: METHOTREXATE
     Indication: Still^s disease
  2. CALCIUM [Concomitant]
     Active Substance: CALCIUM
  3. CHOLECALCIFEROL [Concomitant]
     Active Substance: CHOLECALCIFEROL
  4. INDOMETHACIN [Concomitant]
     Active Substance: INDOMETHACIN
  5. PREDNISONE [Concomitant]
     Active Substance: PREDNISONE

REACTIONS (3)
  - Spinal fracture [Unknown]
  - Off label use [Unknown]
  - Cushingoid [Unknown]
